FAERS Safety Report 13833875 (Version 3)
Quarter: 2017Q3

REPORT INFORMATION
  Report Type: Spontaneous
  Country: JP (occurrence: JP)
  Receive Date: 20170804
  Receipt Date: 20170925
  Transmission Date: 20171127
  Serious: Yes (Other)
  Sender: FDA-Public Use
  Company Number: JP-JNJFOC-20170803259

PATIENT
  Age: 68 Year
  Sex: Male
  Weight: 74 kg

DRUGS (8)
  1. NORVASC [Concomitant]
     Active Substance: AMLODIPINE BESYLATE
     Dosage: STARTED BEFORE 2009
     Route: 048
  2. MICARDIS [Concomitant]
     Active Substance: TELMISARTAN
     Dosage: STARTED BEFORE 2009
     Route: 048
     Dates: start: 20150312
  3. CANAGLU [Suspect]
     Active Substance: CANAGLIFLOZIN
     Indication: TYPE 2 DIABETES MELLITUS
     Route: 048
     Dates: start: 20160729, end: 20170602
  4. THYRADIN [Concomitant]
     Active Substance: LEVOTHYROXINE
     Indication: THYROID DISORDER
     Dosage: STARTED BEFORE 2009
     Route: 048
  5. EQUA [Concomitant]
     Active Substance: VILDAGLIPTIN
     Indication: TYPE 2 DIABETES MELLITUS
     Dosage: STARTED BEFORE 2009
     Route: 048
     Dates: start: 20141120
  6. LIVALO [Concomitant]
     Active Substance: PITAVASTATIN CALCIUM
     Dosage: STARTED BEFORE 2009
     Route: 048
  7. AMARYL [Concomitant]
     Active Substance: GLIMEPIRIDE
     Indication: TYPE 2 DIABETES MELLITUS
     Dosage: STARTED BEFORE 2009
     Route: 048
     Dates: start: 20151211
  8. URSODEOXYCHOLIC ACID [Concomitant]
     Active Substance: URSODIOL
     Indication: HEPATIC FUNCTION ABNORMAL
     Dosage: STARTED BEFORE 2009
     Route: 048
     Dates: end: 20170407

REACTIONS (1)
  - Hepatocellular carcinoma [Unknown]

NARRATIVE: CASE EVENT DATE: 20170330
